FAERS Safety Report 5306903-8 (Version None)
Quarter: 2007Q2

REPORT INFORMATION
  Report Type: 
  Country: None (occurrence: None)
  Receive Date: 20070425
  Receipt Date: 20070416
  Transmission Date: 20071010
  Serious: Yes (Life-Threatening)
  Sender: FDA-Public Use
  Company Number: FR-AVENTIS-200711332FR

PATIENT
  Age: 78 Year
  Sex: Male

DRUGS (9)
  1. LOVENOX [Suspect]
     Route: 058
     Dates: end: 20070303
  2. PREVISCAN                          /00789001/ [Suspect]
     Route: 048
  3. AUGMENTIN                          /00756801/ [Concomitant]
     Route: 048
  4. ALLOPURINOL [Concomitant]
     Route: 048
  5. LASILIX                            /00032601/ [Concomitant]
     Route: 048
  6. DIGITALINE NATIVELLE [Concomitant]
     Route: 048
  7. OROCAL D3 [Concomitant]
  8. BRICANYL [Concomitant]
  9. ATROVENT [Concomitant]

REACTIONS (14)
  - ANAEMIA [None]
  - BLOOD FIBRINOGEN INCREASED [None]
  - BLOOD SODIUM DECREASED [None]
  - CARDIAC FAILURE [None]
  - COAGULATION TIME PROLONGED [None]
  - DRUG INTERACTION [None]
  - HAEMATOMA [None]
  - HAEMODIALYSIS [None]
  - HYPERKALAEMIA [None]
  - INTERNATIONAL NORMALISED RATIO DECREASED [None]
  - PERITONEAL EFFUSION [None]
  - PLEURAL EFFUSION [None]
  - PROTHROMBIN TIME PROLONGED [None]
  - RENAL FAILURE ACUTE [None]
